FAERS Safety Report 4737205-6 (Version None)
Quarter: 2005Q3

REPORT INFORMATION
  Report Type: 
  Country: None (occurrence: None)
  Receive Date: 20050808
  Receipt Date: 20050804
  Transmission Date: 20060218
  Serious: Yes (Hospitalization)
  Sender: FDA-Public Use
  Company Number: GB-MERCK-0508GBR00037

PATIENT
  Age: 79 Year
  Sex: Female
  Weight: 65 kg

DRUGS (7)
  1. FOSAMAX [Suspect]
     Indication: OSTEOPOROSIS
     Route: 048
     Dates: start: 20020909, end: 20050701
  2. ADALIMUMAB [Concomitant]
     Route: 058
     Dates: start: 20050301
  3. PREDNISOLONE [Concomitant]
     Route: 048
     Dates: start: 20021201
  4. ACETAMINOPHEN AND DIHYDROCODEINE BITARTRATE [Concomitant]
     Route: 048
  5. METHOTREXATE [Concomitant]
     Route: 048
     Dates: start: 20041101
  6. FOLIC ACID [Concomitant]
     Route: 065
  7. DICLOFENAC SODIUM AND MISOPROSTOL [Concomitant]
     Route: 048
     Dates: start: 20030501

REACTIONS (1)
  - SPINAL FRACTURE [None]
